FAERS Safety Report 11936684 (Version 3)
Quarter: 2016Q1

REPORT INFORMATION
  Report Type: Spontaneous
  Country: US (occurrence: US)
  Receive Date: 20160121
  Receipt Date: 20160204
  Transmission Date: 20160526
  Serious: Yes (Hospitalization)
  Sender: FDA-Public Use
  Company Number: US-GUERBET LLC-1046730

PATIENT
  Age: 35 Year
  Sex: Female
  Weight: 104.55 kg

DRUGS (3)
  1. MULTIVITAMINS(PANTHENOL, THIAMINE HYDROCHLORIDE, RETINOL, RIBOFLAVIN)( [Concomitant]
     Route: 048
  2. DOTAREM [Suspect]
     Active Substance: GADOTERATE MEGLUMINE
     Indication: NUCLEAR MAGNETIC RESONANCE IMAGING BRAIN
     Route: 042
  3. GLUCAGON. [Concomitant]
     Active Substance: GLUCAGON

REACTIONS (7)
  - Abasia [None]
  - Abdominal pain [Recovered/Resolved]
  - Asthenia [Recovered/Resolved]
  - Dizziness [Recovered/Resolved]
  - Vomiting [Recovered/Resolved]
  - Nausea [Recovered/Resolved]
  - Hyperhidrosis [Recovered/Resolved]
